FAERS Safety Report 13503200 (Version 2)
Quarter: 2017Q2

REPORT INFORMATION
  Report Type: Spontaneous
  Country: US (occurrence: US)
  Receive Date: 20170502
  Receipt Date: 20170531
  Transmission Date: 20170830
  Serious: No
  Sender: FDA-Public Use
  Company Number: US-PFIZER INC-2017184377

PATIENT
  Age: 78 Year
  Sex: Female

DRUGS (1)
  1. XELJANZ XR [Suspect]
     Active Substance: TOFACITINIB CITRATE
     Indication: RHEUMATOID ARTHRITIS
     Dosage: 11 MG, DAILY
     Route: 048
     Dates: start: 201702

REACTIONS (7)
  - Fall [Unknown]
  - Limb injury [Unknown]
  - Nausea [Unknown]
  - Tooth fracture [Unknown]
  - Aphthous ulcer [Unknown]
  - Vomiting [Unknown]
  - Drug ineffective [Unknown]
